FAERS Safety Report 8043274-0 (Version None)
Quarter: 2012Q1

REPORT INFORMATION
  Report Type: 
  Country: None (occurrence: None)
  Receive Date: 20120112
  Receipt Date: 20120105
  Transmission Date: 20120608
  Serious: Yes (Hospitalization)
  Sender: FDA-Public Use
  Company Number: US-GLAXOSMITHKLINE-A0898244A

PATIENT
  Age: 53 Year
  Sex: Male

DRUGS (2)
  1. ROSIGLITAZONE MALEATE [Suspect]
     Indication: DIABETES MELLITUS
     Route: 048
     Dates: start: 20051111, end: 20070901
  2. AVANDIA [Suspect]
     Indication: DIABETES MELLITUS
     Dosage: 4MG PER DAY
     Route: 048
     Dates: end: 20060504

REACTIONS (4)
  - TRANSIENT ISCHAEMIC ATTACK [None]
  - NAUSEA [None]
  - SPINAL CORD HAEMORRHAGE [None]
  - PARAPLEGIA [None]
